FAERS Safety Report 17902496 (Version 2)
Quarter: 2020Q2

REPORT INFORMATION
  Report Type: Spontaneous
  Country: US (occurrence: US)
  Receive Date: 20200616
  Receipt Date: 20200623
  Transmission Date: 20200714
  Serious: No
  Sender: FDA-Public Use
  Company Number: US-BAXTER-2020BAX012192

PATIENT
  Sex: Male

DRUGS (1)
  1. TISSEEL [Suspect]
     Active Substance: FIBRINOGEN HUMAN\THROMBIN HUMAN
     Indication: TISSUE SEALING
     Dosage: THERAPY START DATE AND STOP DATE: ON AN UNKNOWN DATE 2 MONTHS AGO
     Route: 065

REACTIONS (1)
  - Drug ineffective [Not Recovered/Not Resolved]
